FAERS Safety Report 7672701-3 (Version None)
Quarter: 2011Q3

REPORT INFORMATION
  Report Type: 
  Country: None (occurrence: None)
  Receive Date: 20110809
  Receipt Date: 20110804
  Transmission Date: 20111222
  Serious: Yes (Death, Other)
  Sender: FDA-Public Use
  Company Number: PHHY2011JP70487

PATIENT
  Sex: Male

DRUGS (6)
  1. ISONIAZID [Suspect]
     Indication: TUBERCULOSIS
     Dosage: 0.4 G, UNK
  2. PYRAZINAMIDE [Suspect]
     Indication: TUBERCULOSIS
     Dosage: 1.5 G, UNK
  3. RIFAMPICIN [Suspect]
     Indication: TUBERCULOSIS
     Dosage: 450 MG, UNK
  4. RIFAMPICIN [Suspect]
     Dosage: 450 MG, UNK
  5. ETHAMBUTOL HYDROCHLORIDE [Suspect]
     Indication: TUBERCULOSIS
     Dosage: 750 MG, UNK
  6. RIFAMPICIN [Suspect]
     Dosage: 150 MG, UNK

REACTIONS (8)
  - HEPATITIS FULMINANT [None]
  - GAIT DISTURBANCE [None]
  - JAUNDICE [None]
  - ABDOMINAL DISTENSION [None]
  - FATIGUE [None]
  - OEDEMA [None]
  - RASH [None]
  - DECREASED APPETITE [None]
